FAERS Safety Report 10016580 (Version 1)
Quarter: 2014Q1

REPORT INFORMATION
  Report Type: Report from Study
  Country: US (occurrence: US)
  Receive Date: 20140317
  Receipt Date: 20140317
  Transmission Date: 20141002
  Serious: Yes (Death)
  Sender: FDA-Public Use
  Company Number: PHEH2014US005234

PATIENT
  Sex: Female
  Weight: 153 kg

DRUGS (10)
  1. GLEEVEC [Suspect]
     Indication: CHRONIC MYELOID LEUKAEMIA
     Dosage: 300 MG, DAILY
     Route: 048
     Dates: start: 20101027
  2. SYNTHROID [Concomitant]
     Dosage: UNK UKN, UNK
  3. ENALAPRIL [Concomitant]
     Dosage: UNK UKN, UNK
  4. AMLODIPINE [Concomitant]
     Dosage: UNK UKN, UNK
  5. MAGNESIUM [Concomitant]
     Dosage: UNK UKN, UNK
  6. PRILOSEC [Concomitant]
     Dosage: UNK UKN, UNK
  7. IMODIUM [Concomitant]
     Dosage: UNK UKN, UNK
  8. METOPROLOL [Concomitant]
     Dosage: UNK UKN, UNK
  9. FERROUS SULFATE [Concomitant]
     Dosage: UNK UKN, UNK
  10. ZOFRAN [Concomitant]
     Dosage: UNK UKN, UNK

REACTIONS (1)
  - Death [Fatal]
